FAERS Safety Report 10056297 (Version 2)
Quarter: 2015Q1

REPORT INFORMATION
  Report Type: Spontaneous
  Country: US (occurrence: US)
  Receive Date: 20140403
  Receipt Date: 20150119
  Transmission Date: 20150720
  Serious: Yes (Disabling, Other)
  Sender: FDA-Public Use
  Company Number: US-009507513-1404USA000281

PATIENT
  Sex: Male
  Weight: 70.3 kg

DRUGS (4)
  1. FOSAMAX PLUS D [Suspect]
     Active Substance: ALENDRONATE SODIUM\CHOLECALCIFEROL
     Dosage: 2800 IU, QW
     Route: 048
     Dates: start: 20080219, end: 20080415
  2. FOSAMAX [Suspect]
     Active Substance: ALENDRONATE SODIUM
     Indication: OSTEOPOROSIS
     Dosage: 70 MG, QW
     Route: 048
     Dates: start: 20021002, end: 20080415
  3. FOSAMAX [Suspect]
     Active Substance: ALENDRONATE SODIUM
     Indication: OSTEOPENIA
  4. ALENDRONATE SODIUM. [Suspect]
     Active Substance: ALENDRONATE SODIUM
     Dosage: 70 MG, QW
     Route: 048
     Dates: start: 20080612, end: 20100225

REACTIONS (40)
  - Atypical femur fracture [Not Recovered/Not Resolved]
  - Chronic gastritis [Not Recovered/Not Resolved]
  - Stent placement [Unknown]
  - Coronary artery disease [Unknown]
  - Type 2 diabetes mellitus [Unknown]
  - Hypertension [Unknown]
  - Osteoarthritis [Unknown]
  - Osteomalacia [Unknown]
  - Compression fracture [Unknown]
  - Arthroscopy [Unknown]
  - Vertebroplasty [Unknown]
  - Gastrooesophageal reflux disease [Unknown]
  - Osteoporosis [Not Recovered/Not Resolved]
  - Hypothyroidism [Unknown]
  - Macular degeneration [Unknown]
  - Neuropathy peripheral [Unknown]
  - Renal stone removal [Unknown]
  - Deafness [Unknown]
  - Impaired healing [Unknown]
  - Low turnover osteopathy [Not Recovered/Not Resolved]
  - Carotid artery stenosis [Unknown]
  - Arteriosclerosis coronary artery [Unknown]
  - Stent placement [Unknown]
  - Cholecystectomy [Unknown]
  - Femur fracture [Unknown]
  - Nephrolithiasis [Unknown]
  - Benign prostatic hyperplasia [Unknown]
  - Ear pain [Unknown]
  - Carotid endarterectomy [Unknown]
  - Device breakage [Unknown]
  - Peripheral vascular disorder [Unknown]
  - Cellulitis [Recovered/Resolved]
  - Hyperlipidaemia [Unknown]
  - Stress fracture [Not Recovered/Not Resolved]
  - Intramedullary rod insertion [Unknown]
  - Osteonecrosis of jaw [Not Recovered/Not Resolved]
  - Transient ischaemic attack [Unknown]
  - Diverticulum [Unknown]
  - Haemorrhoids [Unknown]
  - Oropharyngeal pain [Unknown]

NARRATIVE: CASE EVENT DATE: 2003
